FAERS Safety Report 9289230 (Version 2)
Quarter: 2013Q3

REPORT INFORMATION
  Report Type: Report from Study
  Country: JP (occurrence: JP)
  Receive Date: 20130514
  Receipt Date: 20130710
  Transmission Date: 20140515
  Serious: Yes (Other)
  Sender: FDA-Public Use
  Company Number: JP-NAPPMUNDI-GBR-2013-0013969

PATIENT
  Age: 61 Year
  Sex: Male

DRUGS (2)
  1. OXYCODONE HCL PR TABLET [Suspect]
     Indication: PRODUCT USED FOR UNKNOWN INDICATION
     Dosage: 40 MG, DAILY
     Route: 048
     Dates: start: 20110902, end: 20110907
  2. OXYCODONE HCL IR POWDER 0.5% [Suspect]
     Indication: PRODUCT USED FOR UNKNOWN INDICATION
     Dosage: 5 MG, DAILY
     Route: 048
     Dates: start: 20110902, end: 20110907

REACTIONS (1)
  - Delirium [Recovered/Resolved]
